FAERS Safety Report 10052167 (Version 1)
Quarter: 2014Q2

REPORT INFORMATION
  Report Type: Spontaneous
  Country: US (occurrence: None)
  Receive Date: 20140401
  Receipt Date: 20140401
  Transmission Date: 20141212
  Serious: Yes (Other)
  Sender: FDA-Public Use
  Company Number: None

PATIENT
  Age: 88 Year
  Sex: Female
  Weight: 72.58 kg

DRUGS (1)
  1. NITROGLYCERIN [Suspect]
     Indication: ACUTE MYOCARDIAL INFARCTION
     Dosage: 25MG/250ML TIRTAE INTRAVENOUS
     Route: 042

REACTIONS (2)
  - Medication error [None]
  - Product label confusion [None]
